FAERS Safety Report 4915001-4 (Version None)
Quarter: 2006Q1

REPORT INFORMATION
  Report Type: 
  Country: None (occurrence: None)
  Receive Date: 20060215
  Receipt Date: 20060215
  Transmission Date: 20060701
  Serious: Yes (Hospitalization)
  Sender: FDA-Public Use
  Company Number: None

PATIENT
  Sex: Male
  Weight: 149.687 kg

DRUGS (3)
  1. TOPROL-XL [Suspect]
     Indication: HYPERTENSION
     Dosage: 100MG PO QD
     Route: 048
  2. HYDROCHLOROTHIAZIDE [Suspect]
     Indication: HYPERTENSION
     Dosage: 12.5 MG PO QD
     Route: 048
  3. AVANDIA [Concomitant]

REACTIONS (2)
  - BRADYCARDIA [None]
  - DIZZINESS [None]
